FAERS Safety Report 9271948 (Version 1)
Quarter: 2013Q2

REPORT INFORMATION
  Report Type: Report from Study
  Country: DE (occurrence: DE)
  Receive Date: 20130506
  Receipt Date: 20130506
  Transmission Date: 20140414
  Serious: Yes (Hospitalization)
  Sender: FDA-Public Use
  Company Number: DE-SANOFI-AVENTIS-2013SA044347

PATIENT
  Age: 31 Year
  Sex: Female

DRUGS (4)
  1. DOCETAXEL [Suspect]
     Indication: GASTROOESOPHAGEAL CANCER
     Route: 041
     Dates: end: 20130130
  2. OXALIPLATIN [Suspect]
     Indication: GASTROOESOPHAGEAL CANCER
     Route: 041
     Dates: end: 20130130
  3. 5-FU [Suspect]
     Indication: GASTROOESOPHAGEAL CANCER
     Route: 041
     Dates: end: 20130130
  4. FOLINIC ACID [Suspect]
     Indication: GASTROOESOPHAGEAL CANCER
     Route: 042
     Dates: end: 20130130

REACTIONS (1)
  - Hepatic mass [Not Recovered/Not Resolved]
